FAERS Safety Report 4652117-4 (Version None)
Quarter: 2005Q2

REPORT INFORMATION
  Report Type: 
  Country: None (occurrence: None)
  Receive Date: 20050504
  Receipt Date: 20050421
  Transmission Date: 20051028
  Serious: Yes (Hospitalization)
  Sender: FDA-Public Use
  Company Number: US-JNJFOC-20050405675

PATIENT
  Age: 61 Year
  Sex: Male

DRUGS (6)
  1. RISPERDAL [Suspect]
     Dosage: DOSE TAKEN AT NIGHT
  2. RISPERDAL [Suspect]
     Dosage: DOSE TAKEN AT NIGHT
  3. RISPERDAL [Suspect]
     Indication: SCHIZOPHRENIA
     Dosage: DOSE TAKEN AT NIGHT
  4. DIVALPROEX SODIUM [Suspect]
     Indication: SCHIZOPHRENIA
     Dosage: DOSE TAKEN AT NIGHT
  5. QUETIAPINE FUMARATE [Concomitant]
  6. QUETIAPINE FUMARATE [Concomitant]
     Indication: SCHIZOPHRENIA
     Dosage: DOSE TAKEN AT NIGHT

REACTIONS (2)
  - ERYTHEMA MULTIFORME [None]
  - NEUROLEPTIC MALIGNANT SYNDROME [None]
